FAERS Safety Report 14734328 (Version 1)
Quarter: 2018Q2

REPORT INFORMATION
  Report Type: Spontaneous
  Country: US (occurrence: US)
  Receive Date: 20180409
  Receipt Date: 20180409
  Transmission Date: 20180711
  Serious: No
  Sender: FDA-Public Use
  Company Number: US-BEH-2018089467

PATIENT
  Sex: Female
  Weight: 87.98 kg

DRUGS (34)
  1. BROMFENAC [Concomitant]
     Active Substance: BROMFENAC SODIUM
     Route: 065
  2. ACETAMINOPHEN. [Concomitant]
     Active Substance: ACETAMINOPHEN
     Route: 065
  3. BYSTOLIC [Concomitant]
     Active Substance: NEBIVOLOL HYDROCHLORIDE
     Route: 065
  4. SKELAXIN [Concomitant]
     Active Substance: METAXALONE
     Route: 065
  5. PHENERGAN [Concomitant]
     Active Substance: PROMETHAZINE HYDROCHLORIDE
     Route: 065
  6. DICYCLOMINE                        /00068601/ [Concomitant]
     Active Substance: DICYCLOMINE HYDROCHLORIDE
     Route: 065
  7. DIPHENHYDRAMINE. [Concomitant]
     Active Substance: DIPHENHYDRAMINE
     Route: 065
  8. ALBUTEROL                          /00139501/ [Concomitant]
     Active Substance: ALBUTEROL
     Route: 065
  9. IBUPROFEN. [Concomitant]
     Active Substance: IBUPROFEN
     Route: 065
  10. SAVELLA [Concomitant]
     Active Substance: MILNACIPRAN HYDROCHLORIDE
     Route: 065
  11. NEOMYCIN. [Concomitant]
     Active Substance: NEOMYCIN
     Route: 065
  12. HIZENTRA [Suspect]
     Active Substance: HUMAN IMMUNOGLOBULIN G
     Indication: SELECTIVE IGG SUBCLASS DEFICIENCY
     Dosage: UNK
     Route: 058
  13. HIZENTRA [Suspect]
     Active Substance: HUMAN IMMUNOGLOBULIN G
     Dosage: 5 G, QW
     Route: 058
     Dates: start: 20120105
  14. VITAMIN D3 [Concomitant]
     Active Substance: CHOLECALCIFEROL
     Route: 065
  15. VISTARIL                           /00058402/ [Concomitant]
     Active Substance: HYDROXYZINE HYDROCHLORIDE
     Route: 065
  16. CIPROFLOXACIN. [Concomitant]
     Active Substance: CIPROFLOXACIN
     Route: 065
  17. KETOROLAC [Concomitant]
     Active Substance: KETOROLAC\KETOROLAC TROMETHAMINE
     Route: 065
  18. EPINEPHRINE. [Concomitant]
     Active Substance: EPINEPHRINE
     Route: 065
  19. NEXIUM [Concomitant]
     Active Substance: ESOMEPRAZOLE MAGNESIUM
     Route: 065
  20. VALIUM [Concomitant]
     Active Substance: DIAZEPAM
     Route: 065
  21. TORSEMIDE. [Concomitant]
     Active Substance: TORSEMIDE
     Route: 065
  22. ROZEREM [Concomitant]
     Active Substance: RAMELTEON
     Route: 065
  23. RANEXA [Concomitant]
     Active Substance: RANOLAZINE
     Route: 065
  24. CORTISONE [Concomitant]
     Active Substance: CORTISONE\HYDROCORTISONE
     Route: 065
  25. SINGULAIR [Concomitant]
     Active Substance: MONTELUKAST SODIUM
     Route: 065
  26. PROLIA [Concomitant]
     Active Substance: DENOSUMAB
     Route: 065
  27. BENTYL [Concomitant]
     Active Substance: DICYCLOMINE HYDROCHLORIDE
     Route: 065
  28. MURO 128 [Concomitant]
     Active Substance: SODIUM CHLORIDE
     Route: 065
  29. LIDOCAINE. [Concomitant]
     Active Substance: LIDOCAINE
     Route: 065
  30. ULTRAM [Concomitant]
     Active Substance: TRAMADOL HYDROCHLORIDE
     Route: 065
  31. CYANOCOBALAMIN. [Concomitant]
     Active Substance: CYANOCOBALAMIN
     Route: 065
  32. OSPEMIFENE [Concomitant]
     Active Substance: OSPEMIFENE
     Route: 065
  33. ATENOLOL. [Concomitant]
     Active Substance: ATENOLOL
     Route: 065
  34. CEFTIN [Concomitant]
     Active Substance: CEFUROXIME AXETIL
     Route: 065

REACTIONS (1)
  - Lichen sclerosus [Unknown]
